FAERS Safety Report 8807989 (Version 2)
Quarter: 2020Q3

REPORT INFORMATION
  Report Type: Report from Study
  Country: US (occurrence: US)
  Receive Date: 20120925
  Receipt Date: 20150311
  Transmission Date: 20201105
  Serious: Yes (Other)
  Sender: FDA-Public Use
  Company Number: US-ROCHE-1100673

PATIENT
  Sex: Female

DRUGS (23)
  1. CARBOPLATIN. [Concomitant]
     Active Substance: CARBOPLATIN
     Route: 042
  2. TAXOL [Concomitant]
     Active Substance: PACLITAXEL
     Route: 042
  3. ROXANOL [Concomitant]
     Active Substance: MORPHINE SULFATE
  4. ZOMETA [Concomitant]
     Active Substance: ZOLEDRONIC ACID
     Route: 065
  5. PROCRIT [Concomitant]
     Active Substance: ERYTHROPOIETIN
  6. DECADRON [Concomitant]
     Active Substance: DEXAMETHASONE
     Route: 042
  7. BENADRYL [Concomitant]
     Active Substance: DIPHENHYDRAMINE HYDROCHLORIDE
     Route: 042
  8. ZOFRAN [Concomitant]
     Active Substance: ONDANSETRON HYDROCHLORIDE
     Route: 065
  9. ATIVAN [Concomitant]
     Active Substance: LORAZEPAM
     Route: 042
  10. AVASTIN [Suspect]
     Active Substance: BEVACIZUMAB
     Indication: LUNG NEOPLASM MALIGNANT
     Route: 042
     Dates: start: 20071212
  11. LIDOCAINE. [Concomitant]
     Active Substance: LIDOCAINE
  12. PERCOCET [Concomitant]
     Active Substance: ACETAMINOPHEN\OXYCODONE HYDROCHLORIDE
  13. COMPAZINE [Concomitant]
     Active Substance: PROCHLORPERAZINE MALEATE
  14. ALOXI [Concomitant]
     Active Substance: PALONOSETRON HYDROCHLORIDE
     Route: 042
  15. FILGRASTIM [Concomitant]
     Active Substance: FILGRASTIM
     Route: 058
  16. MORPHINE [Concomitant]
     Active Substance: MORPHINE
     Route: 065
  17. TYLENOL #2 (UNITED STATES) [Concomitant]
  18. MS CONTIN [Concomitant]
     Active Substance: MORPHINE SULFATE
  19. GEMZAR [Concomitant]
     Active Substance: GEMCITABINE HYDROCHLORIDE
     Route: 042
  20. NAVELBINE [Concomitant]
     Active Substance: VINORELBINE TARTRATE
     Route: 042
  21. IBANDRONIC ACID. [Suspect]
     Active Substance: IBANDRONIC ACID
     Indication: PRODUCT USED FOR UNKNOWN INDICATION
     Route: 065
  22. GRANISETRON [Concomitant]
     Active Substance: GRANISETRON
     Route: 042
  23. TYLENOL [Concomitant]
     Active Substance: ACETAMINOPHEN
     Route: 048

REACTIONS (22)
  - Epistaxis [Unknown]
  - Oesophagitis [Unknown]
  - Erythema [Unknown]
  - Abdominal pain upper [Unknown]
  - Drug intolerance [Unknown]
  - Night sweats [Unknown]
  - Decreased appetite [Unknown]
  - Catheter site pain [Unknown]
  - Nausea [Unknown]
  - Vertigo [Unknown]
  - Skin exfoliation [Unknown]
  - Back pain [Unknown]
  - Throat irritation [Unknown]
  - Constipation [Unknown]
  - Disease progression [Unknown]
  - Chest pain [Unknown]
  - Abdominal pain [Unknown]
  - Weight decreased [Unknown]
  - Sepsis [Unknown]
  - Dyspnoea [Unknown]
  - Nasal discharge discolouration [Unknown]
  - Rash [Unknown]
